FAERS Safety Report 23654003 (Version 2)
Quarter: 2024Q2

REPORT INFORMATION
  Report Type: Spontaneous
  Country: PL (occurrence: PL)
  Receive Date: 20240320
  Receipt Date: 20240617
  Transmission Date: 20240716
  Serious: Yes (Hospitalization)
  Sender: FDA-Public Use
  Company Number: PL-BRISTOL-MYERS SQUIBB COMPANY-2023-131504

PATIENT
  Age: 70 Year
  Sex: Female

DRUGS (8)
  1. OPDIVO [Suspect]
     Active Substance: NIVOLUMAB
     Indication: Metastatic renal cell carcinoma
     Dates: start: 20220525
  2. OPDIVO [Suspect]
     Active Substance: NIVOLUMAB
     Dates: start: 20220615
  3. YERVOY [Suspect]
     Active Substance: IPILIMUMAB
     Indication: Metastatic renal cell carcinoma
     Dates: start: 20220525
  4. YERVOY [Suspect]
     Active Substance: IPILIMUMAB
     Dates: start: 20220615
  5. PREDNISONE [Concomitant]
     Active Substance: PREDNISONE
     Indication: Metastatic renal cell carcinoma
  6. METOPROLOL TARTRATE [Concomitant]
     Active Substance: METOPROLOL TARTRATE
     Indication: Product used for unknown indication
  7. LEVOTHYROXINE SODIUM [Concomitant]
     Active Substance: LEVOTHYROXINE SODIUM
     Indication: Product used for unknown indication
     Dosage: 50/75UG
  8. HYDROCHLOROTHIAZIDE\TELMISARTAN [Concomitant]
     Active Substance: HYDROCHLOROTHIAZIDE\TELMISARTAN
     Indication: Product used for unknown indication
     Dosage: 80+20 MG

REACTIONS (5)
  - Chest pain [Unknown]
  - Exercise tolerance decreased [Unknown]
  - Troponin increased [Unknown]
  - Magnetic resonance imaging abnormal [Unknown]
  - Off label use [Unknown]

NARRATIVE: CASE EVENT DATE: 20220101
